FAERS Safety Report 21885965 (Version 1)
Quarter: 2023Q1

REPORT INFORMATION
  Report Type: Report from Study
  Country: US (occurrence: US)
  Receive Date: 20230119
  Receipt Date: 20230119
  Transmission Date: 20230418
  Serious: No
  Sender: FDA-Public Use
  Company Number: US-ABBVIE-4245092

PATIENT
  Sex: Male

DRUGS (1)
  1. HUMIRA [Suspect]
     Active Substance: ADALIMUMAB
     Indication: Crohn^s disease
     Dosage: CF, 40 MG
     Route: 058
     Dates: start: 20220422

REACTIONS (2)
  - Abdominal pain upper [Not Recovered/Not Resolved]
  - Cough [Unknown]
